FAERS Safety Report 14587939 (Version 1)
Quarter: 2018Q1

REPORT INFORMATION
  Report Type: Spontaneous
  Country: DE (occurrence: DE)
  Receive Date: 20180301
  Receipt Date: 20180301
  Transmission Date: 20180509
  Serious: Yes (Hospitalization, Other)
  Sender: FDA-Public Use
  Company Number: DE-009507513-1802DEU011390

PATIENT
  Age: 33 Year
  Sex: Female

DRUGS (3)
  1. OVITRELLE [Suspect]
     Active Substance: CHORIOGONADOTROPIN ALFA
  2. ORGALUTRAN [Suspect]
     Active Substance: GANIRELIX ACETATE
  3. PERGOVERIS [Suspect]
     Active Substance: FOLLITROPIN\LUTROPIN ALFA
     Dosage: 200 IU, UNK

REACTIONS (6)
  - Abdominal discomfort [Unknown]
  - Vomiting [Unknown]
  - Ovarian hyperstimulation syndrome [Unknown]
  - Ovarian enlargement [Unknown]
  - Nausea [Unknown]
  - Ascites [Unknown]

NARRATIVE: CASE EVENT DATE: 20180215
